FAERS Safety Report 5025289-X (Version None)
Quarter: 2006Q2

REPORT INFORMATION
  Report Type: 
  Country: None (occurrence: None)
  Receive Date: 20060607
  Receipt Date: 20060517
  Transmission Date: 20061013
  Serious: Yes (Hospitalization)
  Sender: FDA-Public Use
  Company Number: US200605004227

PATIENT
  Sex: Female

DRUGS (2)
  1. FORTEO [Suspect]
     Indication: OSTEOPOROSIS
     Dosage: 20 UG
     Dates: start: 20060101
  2. FORTEO [Concomitant]

REACTIONS (3)
  - CONTUSION [None]
  - FALL [None]
  - PHARMACEUTICAL PRODUCT COMPLAINT [None]
